FAERS Safety Report 6862996-8 (Version None)
Quarter: 2010Q3

REPORT INFORMATION
  Report Type: 
  Country: None (occurrence: None)
  Receive Date: 20100721
  Receipt Date: 20100715
  Transmission Date: 20110219
  Serious: Yes (Other)
  Sender: FDA-Public Use
  Company Number: GB-PFIZER INC-2010089031

PATIENT
  Age: 22 Year
  Sex: Male

DRUGS (2)
  1. DEPO-MEDROL [Suspect]
     Dosage: 40 MG, UNK
     Route: 030
     Dates: start: 20091201
  2. ZOLADEX [Concomitant]
     Dosage: UNK

REACTIONS (3)
  - DEPRESSION [None]
  - MANIA [None]
  - PSYCHOTIC DISORDER [None]
